FAERS Safety Report 5754071-0 (Version None)
Quarter: 2008Q2

REPORT INFORMATION
  Report Type: 
  Country: None (occurrence: None)
  Receive Date: 20080527
  Receipt Date: 20080514
  Transmission Date: 20081010
  Serious: Yes (Other)
  Sender: FDA-Public Use
  Company Number: 2008SP009218

PATIENT
  Age: 8 Year
  Sex: Male

DRUGS (1)
  1. AZOMYR (DESLORATADINE) (DESLORATADINE) [Suspect]
     Indication: HYPERSENSITIVITY
     Dosage: 5 ML; QD; PO
     Route: 048
     Dates: start: 20080417, end: 20080417

REACTIONS (2)
  - SPEECH DISORDER [None]
  - SWELLING FACE [None]
